FAERS Safety Report 5950676-2 (Version None)
Quarter: 2008Q4

REPORT INFORMATION
  Report Type: 
  Country: None (occurrence: None)
  Receive Date: 20081112
  Receipt Date: 20081104
  Transmission Date: 20090506
  Serious: Yes (Other)
  Sender: FDA-Public Use
  Company Number: CN-SANOFI-SYNTHELABO-A01200813945

PATIENT
  Age: 49 Year
  Sex: Female

DRUGS (3)
  1. ENDOSTAR [Concomitant]
     Indication: COLORECTAL CANCER METASTATIC
     Dosage: D1-14
     Route: 041
  2. GEMCITABINE HCL [Concomitant]
     Indication: COLORECTAL CANCER METASTATIC
     Dosage: D1,8
     Route: 041
  3. ELOXATIN [Suspect]
     Indication: COLORECTAL CANCER
     Dosage: D2
     Route: 041

REACTIONS (2)
  - BONE MARROW FAILURE [None]
  - PYREXIA [None]
